FAERS Safety Report 6583052-2 (Version None)
Quarter: 2010Q1

REPORT INFORMATION
  Report Type: 
  Country: None (occurrence: None)
  Receive Date: 20100216
  Receipt Date: 20100204
  Transmission Date: 20100710
  Serious: Yes (Hospitalization)
  Sender: FDA-Public Use
  Company Number: JP-ROCHE-681254

PATIENT
  Sex: Male
  Weight: 56.1 kg

DRUGS (7)
  1. XELODA [Suspect]
     Indication: RECTAL CANCER
     Dosage: DRUG NAME: XELODA 300 (CAPECITABINE). IT IS ONE ADMINISTERING WEEKLY HOLIDAY MEDICINE FOR 2 WEEKS
     Route: 048
     Dates: start: 20100113, end: 20100118
  2. PYDOXAL [Concomitant]
     Route: 048
     Dates: start: 20100113, end: 20100118
  3. HIRUDOID [Concomitant]
     Dosage: DOSE FORM: OINTMENT AND CREAM
     Route: 062
     Dates: start: 20100113, end: 20100118
  4. BONDORMIN [Concomitant]
     Dosage: DRUG: BROTIZOLAM OD(BROTIZOLAM)
     Route: 048
     Dates: start: 20100114, end: 20100118
  5. GOSHAJINKIGAN [Concomitant]
     Dosage: DRUG: GOSHA-JINKI-GAN
     Route: 048
     Dates: start: 20100115, end: 20100118
  6. PARIET [Concomitant]
     Dosage: DRUG: SODIUM RABEPRAZOLE
     Route: 048
     Dates: start: 20100117, end: 20100118
  7. NOVAMIN [Concomitant]
     Dosage: DRUG: PROCHLORPERAZINE MALEATE
     Route: 048
     Dates: start: 20100118, end: 20100118

REACTIONS (5)
  - DECREASED APPETITE [None]
  - DYSPEPSIA [None]
  - HYPOAESTHESIA [None]
  - LEUKOENCEPHALOPATHY [None]
  - NAUSEA [None]
